FAERS Safety Report 7522587-2 (Version None)
Quarter: 2011Q2

REPORT INFORMATION
  Report Type: 
  Country: None (occurrence: None)
  Receive Date: 20110603
  Receipt Date: 20110525
  Transmission Date: 20111010
  Serious: Yes (Death, Hospitalization, Other)
  Sender: FDA-Public Use
  Company Number: JP-ROCHE-779901

PATIENT
  Sex: Female
  Weight: 40 kg

DRUGS (3)
  1. OXALIPLATIN [Suspect]
     Indication: COLON CANCER METASTATIC
     Route: 041
     Dates: start: 20110209, end: 20110302
  2. AVASTIN [Suspect]
     Indication: COLON CANCER METASTATIC
     Route: 041
     Dates: start: 20110209, end: 20110302
  3. XELODA [Suspect]
     Indication: COLON CANCER METASTATIC
     Dosage: IT IS ONE ADMINISTERING WEEKLY HOLIDAY MEDICINE FOR TWO WEEKS.
     Route: 048
     Dates: start: 20110209, end: 20110316

REACTIONS (17)
  - DECREASED APPETITE [None]
  - WHITE BLOOD CELL COUNT DECREASED [None]
  - PERIPHERAL SENSORY NEUROPATHY [None]
  - NEUTROPHIL COUNT DECREASED [None]
  - HYPOALBUMINAEMIA [None]
  - HEPATIC FAILURE [None]
  - MALAISE [None]
  - DISSEMINATED INTRAVASCULAR COAGULATION [None]
  - PNEUMONIA [None]
  - DIARRHOEA [None]
  - VASCULAR INSUFFICIENCY [None]
  - C-REACTIVE PROTEIN INCREASED [None]
  - INFECTION [None]
  - MULTI-ORGAN FAILURE [None]
  - PALMAR-PLANTAR ERYTHRODYSAESTHESIA SYNDROME [None]
  - LIVER DISORDER [None]
  - GASTROINTESTINAL HAEMORRHAGE [None]
